FAERS Safety Report 18163688 (Version 4)
Quarter: 2020Q4

REPORT INFORMATION
  Report Type: Spontaneous
  Country: US (occurrence: US)
  Receive Date: 20200818
  Receipt Date: 20201126
  Transmission Date: 20210113
  Serious: Yes (Hospitalization, Other)
  Sender: FDA-Public Use
  Company Number: US-AMGEN-USASP2020132013

PATIENT
  Age: 53 Year
  Sex: Male
  Weight: 88.44 kg

DRUGS (1)
  1. OTEZLA [Suspect]
     Active Substance: APREMILAST
     Indication: PSORIASIS
     Dosage: 30 MILLIGRAM, BID
     Route: 048
     Dates: start: 20200211, end: 20201009

REACTIONS (4)
  - Kidney infection [Not Recovered/Not Resolved]
  - Bladder cancer [Not Recovered/Not Resolved]
  - Nephrolithiasis [Not Recovered/Not Resolved]
  - Keratinising squamous cell carcinoma of nasopharynx [Unknown]

NARRATIVE: CASE EVENT DATE: 2020
